FAERS Safety Report 6907744-8 (Version None)
Quarter: 2010Q3

REPORT INFORMATION
  Report Type: 
  Country: None (occurrence: None)
  Receive Date: 20100712
  Receipt Date: 20091005
  Transmission Date: 20110219
  Serious: No
  Sender: FDA-Public Use
  Company Number: US-001094

PATIENT
  Sex: Male
  Weight: 99.7913 kg

DRUGS (3)
  1. KUVAN [Suspect]
     Indication: PHENYLKETONURIA
     Dosage: (2100 MG QD ORAL), (1800 MG QD ORAL)
     Route: 048
     Dates: start: 20090901, end: 20100201
  2. KUVAN [Suspect]
     Indication: PHENYLKETONURIA
     Dosage: (2100 MG QD ORAL), (1800 MG QD ORAL)
     Route: 048
     Dates: start: 20100201, end: 20100201
  3. PAROXETINE HCL [Concomitant]

REACTIONS (1)
  - DIARRHOEA [None]
